FAERS Safety Report 4571454-5 (Version None)
Quarter: 2005Q1

REPORT INFORMATION
  Report Type: 
  Country: None (occurrence: None)
  Receive Date: 20050207
  Receipt Date: 20050126
  Transmission Date: 20050727
  Serious: Yes (Hospitalization, Other)
  Sender: FDA-Public Use
  Company Number: US-JNJFOC-20040909183

PATIENT
  Sex: Female
  Weight: 74.84 kg

DRUGS (53)
  1. REMICADE [Suspect]
     Route: 042
  2. REMICADE [Suspect]
     Route: 042
  3. REMICADE [Suspect]
     Route: 042
  4. REMICADE [Suspect]
     Route: 042
  5. REMICADE [Suspect]
     Route: 042
  6. REMICADE [Suspect]
     Route: 042
  7. REMICADE [Suspect]
     Route: 042
  8. REMICADE [Suspect]
     Route: 042
  9. REMICADE [Suspect]
     Route: 042
  10. REMICADE [Suspect]
     Route: 042
  11. REMICADE [Suspect]
     Route: 042
  12. REMICADE [Suspect]
     Route: 042
  13. REMICADE [Suspect]
     Route: 042
  14. REMICADE [Suspect]
     Route: 042
  15. REMICADE [Suspect]
     Route: 042
  16. REMICADE [Suspect]
     Route: 042
  17. REMICADE [Suspect]
     Indication: CROHN'S DISEASE
     Route: 042
  18. ACETAMINOPHEN [Concomitant]
  19. ACETAMINOPHEN [Concomitant]
  20. ACETAMINOPHEN [Concomitant]
  21. ACETAMINOPHEN [Concomitant]
  22. ACETAMINOPHEN [Concomitant]
  23. ACETAMINOPHEN [Concomitant]
  24. ACETAMINOPHEN [Concomitant]
  25. ACETAMINOPHEN [Concomitant]
  26. ACETAMINOPHEN [Concomitant]
  27. ACETAMINOPHEN [Concomitant]
  28. ACETAMINOPHEN [Concomitant]
  29. ACETAMINOPHEN [Concomitant]
  30. ACETAMINOPHEN [Concomitant]
  31. ACETAMINOPHEN [Concomitant]
  32. ACETAMINOPHEN [Concomitant]
  33. ACETAMINOPHEN [Concomitant]
  34. ACETAMINOPHEN [Concomitant]
     Indication: PREMEDICATION
  35. IMURAN [Concomitant]
  36. BIRTH CONTROL, UNSPECIFIED [Concomitant]
  37. ANTI-HISTAMINE TAB [Concomitant]
  38. ANTI-HISTAMINE TAB [Concomitant]
  39. ANTI-HISTAMINE TAB [Concomitant]
  40. ANTI-HISTAMINE TAB [Concomitant]
  41. ANTI-HISTAMINE TAB [Concomitant]
  42. ANTI-HISTAMINE TAB [Concomitant]
  43. ANTI-HISTAMINE TAB [Concomitant]
  44. ANTI-HISTAMINE TAB [Concomitant]
  45. ANTI-HISTAMINE TAB [Concomitant]
  46. ANTI-HISTAMINE TAB [Concomitant]
  47. ANTI-HISTAMINE TAB [Concomitant]
  48. ANTI-HISTAMINE TAB [Concomitant]
  49. ANTI-HISTAMINE TAB [Concomitant]
  50. ANTI-HISTAMINE TAB [Concomitant]
  51. ANTI-HISTAMINE TAB [Concomitant]
  52. ANTI-HISTAMINE TAB [Concomitant]
  53. ANTI-HISTAMINE TAB [Concomitant]
     Indication: PREMEDICATION

REACTIONS (3)
  - APPENDICITIS [None]
  - HEADACHE [None]
  - INFUSION RELATED REACTION [None]
